FAERS Safety Report 16009180 (Version 1)
Quarter: 2019Q1

REPORT INFORMATION
  Report Type: Spontaneous
  Country: US (occurrence: US)
  Receive Date: 20190226
  Receipt Date: 20190226
  Transmission Date: 20190418
  Serious: Yes (Other)
  Sender: FDA-Public Use
  Company Number: US-VALIDUS PHARMACEUTICALS LLC-US-2019VAL000052

PATIENT

DRUGS (10)
  1. LANTUS [Suspect]
     Active Substance: INSULIN GLARGINE
     Dosage: 10 UNITS QD
     Route: 058
  2. LANTUS [Suspect]
     Active Substance: INSULIN GLARGINE
     Indication: TYPE 2 DIABETES MELLITUS
     Dosage: 5 UNITS, QD
     Route: 058
  3. METFORMIN [Suspect]
     Active Substance: METFORMIN HYDROCHLORIDE
     Indication: PRODUCT USED FOR UNKNOWN INDICATION
     Dosage: 2000 MG, QD
     Route: 065
  4. COUMADIN [Suspect]
     Active Substance: WARFARIN SODIUM
     Indication: ATRIAL FIBRILLATION
     Dosage: 5 MG, UNK (STARTED 6-7 YEARS PRIOR TO THIS REPORT)
     Route: 065
  5. LANTUS [Suspect]
     Active Substance: INSULIN GLARGINE
     Dosage: 20 UNITS QD
     Route: 058
  6. COUMADIN [Suspect]
     Active Substance: WARFARIN SODIUM
     Dosage: 3.7 MG, ON MONDAYS, WEDNESDAYS, AND FRIDAYS
     Route: 065
  7. METOPROLOL TARTRATE. [Suspect]
     Active Substance: METOPROLOL TARTRATE
     Indication: ATRIAL FIBRILLATION
     Dosage: 100 MG, QD (STARTED 6-7 YEARS PRIOR TO THIS REPORT)
     Route: 065
  8. LASIX [Suspect]
     Active Substance: FUROSEMIDE
     Indication: PERIPHERAL SWELLING
     Dosage: 20 MG, QD (STARTED 6-7 YEARS PRIOR TO THIS REPORT)
     Route: 065
  9. LASIX [Suspect]
     Active Substance: FUROSEMIDE
     Dosage: 20 MG, EVERY SECOND DAY
     Route: 065
  10. DYAZIDE [Suspect]
     Active Substance: HYDROCHLOROTHIAZIDE\TRIAMTERENE
     Indication: PERIPHERAL SWELLING
     Dosage: UNK (STARTED 6-7 YEARS PRIOR TO THIS REPORT)
     Route: 065

REACTIONS (7)
  - Post procedural haemorrhage [Unknown]
  - Hypotension [Unknown]
  - Blood glucose increased [Unknown]
  - Fall [Unknown]
  - Vertigo [Unknown]
  - Dysstasia [Unknown]
  - Pollakiuria [Unknown]

NARRATIVE: CASE EVENT DATE: 201807
